FAERS Safety Report 10146838 (Version 2)
Quarter: 2014Q2

REPORT INFORMATION
  Report Type: Spontaneous
  Country: FR (occurrence: None)
  Receive Date: 20140429
  Receipt Date: 20140529
  Transmission Date: 20141212
  Serious: Yes (Life-Threatening, Other)
  Sender: FDA-Public Use
  Company Number: 2314559

PATIENT
  Age: 82 Year
  Sex: Male
  Weight: 82 kg

DRUGS (1)
  1. DEXMEDETOMIDINE HYDROCHLORIDE [Suspect]
     Indication: AGITATION
     Dosage: 0.6 MCG/KG/H AT 4 PM THEN 0.2 MCG/KG/HR,  16:00 - 15:000??(NOT OTHERWISE SPECIFIED)
     Dates: start: 20140330, end: 20140331

REACTIONS (5)
  - Loss of consciousness [None]
  - Bradycardia [None]
  - Cerebral hypoperfusion [None]
  - Cardiac output decreased [None]
  - Hypotension [None]
